FAERS Safety Report 8989003 (Version 2)
Quarter: 2013Q1

REPORT INFORMATION
  Report Type: Report from Study
  Country: DE (occurrence: DE)
  Receive Date: 20121227
  Receipt Date: 20130214
  Transmission Date: 20140127
  Serious: Yes (Other)
  Sender: FDA-Public Use
  Company Number: DE-OTSUKA-EU-2011-10260

PATIENT
  Sex: Female

DRUGS (22)
  1. SALINE [Concomitant]
     Dosage: 231 MMOL MILLIMOLE(S), DAILY DOSE
     Dates: start: 20101112, end: 20101112
  2. SALINE [Concomitant]
     Dosage: 154 MMOL MILLIMOLE(S), DAILY DOSE
     Dates: start: 20101113, end: 20101114
  3. SALINE [Concomitant]
     Dosage: 77 MMOL MILLIMOLE(S), DAILY DOSE
     Dates: start: 20101115, end: 20101115
  4. SALINE [Concomitant]
     Dosage: 154 MMOL MILLIMOLE(S), DAILY DOSE
     Dates: start: 20110306, end: 20110306
  5. RAMIPRIL [Concomitant]
     Indication: HYPERTENSION
     Dosage: 2.5 MG MILLIGRAM(S), DAILY DOSE
     Route: 048
     Dates: end: 20101028
  6. RAMIPRIL [Concomitant]
     Dosage: 5 MG MILLIGRAM(S), DAILY DOSE
     Route: 048
     Dates: start: 20101029, end: 20101105
  7. MARCUMAR [Concomitant]
     Indication: ATRIAL FIBRILLATION
     Dosage: 3 MG MILLIGRAM(S), DAILY DOSE
     Route: 048
     Dates: start: 20101027
  8. CHOLESTYRAMIN [Concomitant]
     Indication: OVERDOSE
     Dosage: 1 DF DOSAGE FORM, DAILY DOSE
     Route: 048
     Dates: start: 20101027, end: 20101028
  9. PANTOZOL [Concomitant]
     Indication: PROPHYLAXIS
     Dosage: 40 MG MILLIGRAM(S), DAILY DOSE
     Route: 048
     Dates: start: 20101027
  10. BELOC-ZOK [Concomitant]
     Indication: HYPERTENSION
     Dosage: 47.5 MG MILLIGRAM(S), DAILY DOSE
     Route: 048
     Dates: start: 20101027
  11. BELOC-ZOK [Concomitant]
     Indication: CORONARY ARTERY DISEASE
  12. NOVALGIN [Concomitant]
     Indication: PYREXIA
     Dosage: 60 GTT DROP(S), DAILY DOSE
     Route: 048
     Dates: start: 20101101, end: 20101105
  13. CEFTRIAXONE [Concomitant]
     Indication: URINARY TRACT INFECTION
     Dosage: 2 G GRAM(S), DAILY DOSE
     Route: 042
     Dates: start: 20101030, end: 20101031
  14. DIGITOXIN [Concomitant]
     Indication: ATRIAL FIBRILLATION
     Dosage: 0.07 MG MILLIGRAM(S), DAILY DOSE
     Route: 048
     Dates: end: 20101026
  15. DIGITOXIN [Concomitant]
     Indication: CARDIAC FAILURE
     Dosage: 0.07 MG MILLIGRAM(S), DAILY DOSE
     Route: 048
     Dates: start: 20101029
  16. SAMSCA [Suspect]
     Indication: INAPPROPRIATE ANTIDIURETIC HORMONE SECRETION
     Dosage: 15 MG MILLIGRAM(S), DAILY DOSE
     Route: 048
     Dates: start: 20101028, end: 20101105
  17. SAMSCA [Suspect]
     Dosage: 15 MG MILLIGRAM(S), DAILY DOSE
     Route: 048
     Dates: start: 20101113, end: 20111016
  18. SAMSCA [Suspect]
     Dosage: 15 MG MILLIGRAM(S), QOD
     Route: 048
     Dates: start: 20101117, end: 20110306
  19. SAMSCA [Suspect]
     Dosage: 7.5 MG MILLIGRAM(S), QOD
     Route: 048
     Dates: start: 20110309, end: 201208
  20. TORASEMIDE [Concomitant]
     Indication: HYPERTENSION
     Dosage: 2.5 MG MILLIGRAM(S), DAILY DOSE
     Route: 048
     Dates: end: 20101026
  21. SALINE [Concomitant]
     Dosage: 231 MMOL MILLIMOLE(S), DAILY DOSE
     Dates: start: 20101026, end: 20101101
  22. SALINE [Concomitant]
     Dosage: 77 MMOL MILLIMOLE(S), DAILY DOSE
     Dates: start: 20101102, end: 20101102

REACTIONS (11)
  - Confusional state [Recovered/Resolved]
  - Blood pressure increased [Recovered/Resolved]
  - Pain in extremity [Recovered/Resolved]
  - Urinary tract infection [Recovered/Resolved]
  - Chest pain [Recovered/Resolved]
  - Dyspnoea [Recovered/Resolved]
  - Hypertension [Recovered/Resolved]
  - Sleep disorder [Recovered/Resolved]
  - Pyrexia [Recovered/Resolved]
  - Wrong technique in drug usage process [Unknown]
  - Incorrect drug administration rate [Unknown]
